FAERS Safety Report 24623472 (Version 1)
Quarter: 2024Q4

REPORT INFORMATION
  Report Type: Spontaneous
  Country: IN (occurrence: IN)
  Receive Date: 20241115
  Receipt Date: 20241115
  Transmission Date: 20250115
  Serious: Yes (Other)
  Sender: ROCHE
  Company Number: IN-ROCHE-10000131438

PATIENT
  Age: 70 Year
  Sex: Male

DRUGS (1)
  1. PHESGO [Suspect]
     Active Substance: HYALURONIDASE-ZZXF\PERTUZUMAB\TRASTUZUMAB
     Indication: Malignant sweat gland neoplasm
     Route: 058
     Dates: start: 20240511

REACTIONS (3)
  - Blood albumin decreased [Unknown]
  - Seizure [Unknown]
  - Metastasis [Unknown]

NARRATIVE: CASE EVENT DATE: 20240828
